FAERS Safety Report 4833465-1 (Version None)
Quarter: 2005Q4

REPORT INFORMATION
  Report Type: 
  Country: None (occurrence: None)
  Receive Date: 20051121
  Receipt Date: 20020412
  Transmission Date: 20060501
  Serious: Yes (Other)
  Sender: FDA-Public Use
  Company Number: PHBS2002US04809

PATIENT
  Age: 46 Year
  Sex: Male

DRUGS (6)
  1. CYCLOSPORINE [Suspect]
     Indication: RENAL TRANSPLANT
     Dosage: 600-400 MG/D
     Route: 048
     Dates: start: 19970201
  2. PREDNISONE [Concomitant]
     Indication: RENAL TRANSPLANT
     Dosage: 30-10 MG/D
     Route: 048
     Dates: start: 19970201
  3. MYCOPHENOLATE MOFETIL [Concomitant]
     Indication: RENAL TRANSPLANT
     Dosage: 3-1 G/D
     Route: 048
     Dates: start: 19970201
  4. OMEPRAZOLE [Concomitant]
     Dosage: 20 MG/D
     Route: 048
  5. NIZATIDINE [Concomitant]
     Dosage: 150 MG/D
     Route: 048
  6. PRAVASTATIN [Concomitant]
     Dosage: 10 MG/D
     Route: 048

REACTIONS (4)
  - CONJUNCTIVAL DISORDER [None]
  - EYE DISCHARGE [None]
  - EYE IRRITATION [None]
  - OCULAR HYPERTENSION [None]
